FAERS Safety Report 9789846 (Version 1)
Quarter: 2013Q4

REPORT INFORMATION
  Report Type: Spontaneous
  Country: US (occurrence: None)
  Receive Date: 20131230
  Receipt Date: 20131230
  Transmission Date: 20140711
  Serious: Yes (Life-Threatening, Other)
  Sender: FDA-Public Use
  Company Number: None

PATIENT
  Age: 19 Year
  Sex: Male
  Weight: 83.92 kg

DRUGS (1)
  1. CORICIDIN HBP [Suspect]
     Indication: INTENTIONAL DRUG MISUSE
     Dates: start: 20130501, end: 20131229

REACTIONS (5)
  - Incorrect dose administered [None]
  - Convulsion [None]
  - Fall [None]
  - Motor dysfunction [None]
  - Crime [None]
